FAERS Safety Report 13150531 (Version 1)
Quarter: 2017Q1

REPORT INFORMATION
  Report Type: Spontaneous
  Country: CA (occurrence: CA)
  Receive Date: 20170125
  Receipt Date: 20170125
  Transmission Date: 20170428
  Serious: Yes (Hospitalization, Other)
  Sender: FDA-Public Use
  Company Number: CA-PFIZER INC-2017029959

PATIENT
  Age: 25 Year
  Sex: Male

DRUGS (2)
  1. TESTOSTERONE ENANTATE [Suspect]
     Active Substance: TESTOSTERONE
     Indication: MUSCLE BUILDING THERAPY
     Dosage: UNK
  2. LIOTHYRONINE SODIUM. [Suspect]
     Active Substance: LIOTHYRONINE SODIUM
     Indication: FAT REDISTRIBUTION
     Dosage: UNK
     Route: 048

REACTIONS (4)
  - Hypertension [Unknown]
  - Hepatic neoplasm [Unknown]
  - Product use issue [Unknown]
  - Congestive cardiomyopathy [Not Recovered/Not Resolved]
